FAERS Safety Report 6149665-7 (Version None)
Quarter: 2009Q2

REPORT INFORMATION
  Report Type: 
  Country: None (occurrence: None)
  Receive Date: 20090407
  Receipt Date: 20090407
  Transmission Date: 20091009
  Serious: Yes (Life-Threatening)
  Sender: FDA-Public Use
  Company Number: None

PATIENT
  Age: 39 Year
  Sex: Male
  Weight: 77.1115 kg

DRUGS (2)
  1. ACCUTANE [Suspect]
     Indication: ACNE
     Dosage: 2 PER DAY
     Dates: start: 19950101, end: 19951029
  2. . [Concomitant]

REACTIONS (11)
  - ACNE [None]
  - CARDIAC DISORDER [None]
  - CONDITION AGGRAVATED [None]
  - FACIAL PAIN [None]
  - FEELING ABNORMAL [None]
  - GASTRIC DISORDER [None]
  - MIGRAINE [None]
  - NEOPLASM MALIGNANT [None]
  - PAIN OF SKIN [None]
  - POISONING [None]
  - UNEMPLOYMENT [None]
